FAERS Safety Report 8345290-8 (Version None)
Quarter: 2012Q2

REPORT INFORMATION
  Report Type: 
  Country: None (occurrence: None)
  Receive Date: 20120508
  Receipt Date: 20120423
  Transmission Date: 20120825
  Serious: Yes (Other)
  Sender: FDA-Public Use
  Company Number: US-ENDO PHARMACEUTICALS INC.-OPCR20120432

PATIENT
  Sex: Male
  Weight: 118.04 kg

DRUGS (3)
  1. OPANA ER [Suspect]
     Indication: PAIN
     Route: 048
     Dates: start: 20120401, end: 20120401
  2. OPANA ER [Suspect]
     Route: 048
     Dates: start: 20120401
  3. ROXICODONE [Concomitant]
     Indication: PAIN
     Route: 048

REACTIONS (5)
  - MEDICATION RESIDUE [None]
  - WITHDRAWAL SYNDROME [None]
  - DRUG ABUSE [None]
  - INTENTIONAL DRUG MISUSE [None]
  - DRUG INEFFECTIVE [None]
